FAERS Safety Report 23943306 (Version 1)
Quarter: 2024Q2

REPORT INFORMATION
  Report Type: Spontaneous
  Country: IL (occurrence: IL)
  Receive Date: 20240605
  Receipt Date: 20240605
  Transmission Date: 20240716
  Serious: Yes (Hospitalization, Other)
  Sender: FDA-Public Use
  Company Number: IL-ALXN-202402EEA001581IL

PATIENT
  Age: 5 Year
  Sex: Male

DRUGS (2)
  1. KANUMA [Suspect]
     Active Substance: SEBELIPASE ALFA
     Indication: Lysosomal acid lipase deficiency
     Dosage: 4.5-5 MILLIGRAM/KILOGRAM
     Route: 065
     Dates: start: 2019
  2. KANUMA [Suspect]
     Active Substance: SEBELIPASE ALFA
     Dosage: 4.5 MILLIGRAM/KILOGRAM
     Route: 065

REACTIONS (3)
  - Superior vena cava occlusion [Recovering/Resolving]
  - Pulmonary oedema [Recovering/Resolving]
  - Dependence on respirator [Recovering/Resolving]

NARRATIVE: CASE EVENT DATE: 20240501
